FAERS Safety Report 6557872-4 (Version None)
Quarter: 2010Q1

REPORT INFORMATION
  Report Type: 
  Country: None (occurrence: None)
  Receive Date: 20100128
  Receipt Date: 20100128
  Transmission Date: 20100710
  Serious: Yes (Life-Threatening, Other)
  Sender: FDA-Public Use
  Company Number: None

PATIENT
  Sex: Male
  Weight: 40.8237 kg

DRUGS (1)
  1. MARLBORO ULTRA LIGHT CIGARETTES ULTRA LIGHT PHILIP MORRIS [Suspect]
     Dosage: SINCE APPROX. AUGUST 2009
     Dates: start: 20090801

REACTIONS (6)
  - BRONCHITIS CHRONIC [None]
  - DYSGEUSIA [None]
  - MIGRAINE [None]
  - PHARYNGEAL ULCERATION [None]
  - STOMATITIS [None]
  - THERMAL BURN [None]
